FAERS Safety Report 10836918 (Version 2)
Quarter: 2015Q1

REPORT INFORMATION
  Report Type: Spontaneous
  Country: BE (occurrence: None)
  Receive Date: 20150218
  Receipt Date: 20150226
  Transmission Date: 20150721
  Serious: Yes (Death)
  Sender: FDA-Public Use
  Company Number: 2748203

PATIENT

DRUGS (3)
  1. CLOFARABINE [Suspect]
     Active Substance: CLOFARABINE
     Indication: CHEMOTHERAPY
     Route: 040
  2. CYTARABINE. [Suspect]
     Active Substance: CYTARABINE
     Indication: CHEMOTHERAPY
  3. IDARUBICIN [Suspect]
     Active Substance: IDARUBICIN
     Indication: CHEMOTHERAPY

REACTIONS (2)
  - Off label use [None]
  - Toxicity to various agents [None]
